FAERS Safety Report 21873362 (Version 3)
Quarter: 2023Q1

REPORT INFORMATION
  Report Type: Spontaneous
  Country: GB (occurrence: GB)
  Receive Date: 20230117
  Receipt Date: 20230220
  Transmission Date: 20230417
  Serious: Yes (Hospitalization, Other)
  Sender: FDA-Public Use
  Company Number: GB-MYLANLABS-2022M1078618

PATIENT
  Age: 35 Year
  Sex: Male

DRUGS (8)
  1. CLOZARIL [Suspect]
     Active Substance: CLOZAPINE
     Indication: Schizophrenia
     Dosage: UNK
     Route: 048
     Dates: start: 20220124
  2. CLOZARIL [Suspect]
     Active Substance: CLOZAPINE
     Dosage: 400 MILLIGRAM, HS (NIGHT)
     Route: 048
     Dates: end: 20230104
  3. CLOZARIL [Suspect]
     Active Substance: CLOZAPINE
     Dosage: 350 MILLIGRAM
     Route: 048
  4. CLOZARIL [Suspect]
     Active Substance: CLOZAPINE
     Dosage: 450 MILLIGRAM, HS (NIGHT)
     Route: 048
     Dates: start: 20230107
  5. CLOZARIL [Suspect]
     Active Substance: CLOZAPINE
     Dosage: 75 MILLIGRAM, BID
     Route: 065
  6. CLOZARIL [Suspect]
     Active Substance: CLOZAPINE
     Dosage: 25 MILLIGRAM
     Route: 065
  7. VALPROATE [Suspect]
     Active Substance: VALPROIC ACID
     Indication: Seizure
     Dosage: 1 GRAM, BID
     Route: 065
  8. VALPROATE [Suspect]
     Active Substance: VALPROIC ACID
     Dosage: 500 MILLIGRAM, BID
     Route: 065

REACTIONS (12)
  - Respiratory tract infection [Unknown]
  - Chest pain [Unknown]
  - Neck pain [Unknown]
  - Tremor [Unknown]
  - Dizziness [Unknown]
  - Pneumonia [Unknown]
  - Pyrexia [Unknown]
  - Hepatic necrosis [Unknown]
  - Granulomatous liver disease [Unknown]
  - Differential white blood cell count abnormal [Recovering/Resolving]
  - Antipsychotic drug level above therapeutic [Unknown]
  - Off label use [Unknown]

NARRATIVE: CASE EVENT DATE: 20220713
